FAERS Safety Report 18422449 (Version 1)
Quarter: 2020Q4

REPORT INFORMATION
  Report Type: Spontaneous
  Country: EG (occurrence: EG)
  Receive Date: 20201023
  Receipt Date: 20201023
  Transmission Date: 20210114
  Serious: Yes (Hospitalization, Other)
  Sender: FDA-Public Use
  Company Number: EG-NOVOPROD-762278

PATIENT
  Age: 672 Month
  Sex: Male
  Weight: 80 kg

DRUGS (1)
  1. MIXTARD 30 HM PENFILL [Suspect]
     Active Substance: INSULIN HUMAN
     Indication: DIABETES MELLITUS
     Dosage: 40-50U MORNING
     Route: 058

REACTIONS (1)
  - Catheterisation cardiac [Unknown]

NARRATIVE: CASE EVENT DATE: 20190614
